FAERS Safety Report 6512541-1 (Version None)
Quarter: 2009Q4

REPORT INFORMATION
  Report Type: 
  Country: None (occurrence: None)
  Receive Date: 20091222
  Receipt Date: 20091217
  Transmission Date: 20100525
  Serious: Yes (Hospitalization)
  Sender: FDA-Public Use
  Company Number: CH-MERCK-0912CHE00011

PATIENT
  Age: 44 Year
  Sex: Male

DRUGS (4)
  1. PRIMAXIN [Suspect]
     Indication: LUNG INFECTION PSEUDOMONAL
     Route: 051
     Dates: start: 20091110, end: 20091113
  2. VANCOMYCIN [Concomitant]
     Indication: LUNG INFECTION PSEUDOMONAL
     Route: 048
     Dates: start: 20091001
  3. FLAGYL [Concomitant]
     Indication: LUNG INFECTION PSEUDOMONAL
     Route: 048
     Dates: start: 20091001
  4. MERONEM [Concomitant]
     Indication: LUNG INFECTION PSEUDOMONAL
     Route: 065
     Dates: start: 20091001, end: 20091110

REACTIONS (1)
  - EPILEPSY [None]
